FAERS Safety Report 9879633 (Version 1)
Quarter: 2014Q1

REPORT INFORMATION
  Report Type: Spontaneous
  Country: NL (occurrence: NL)
  Receive Date: 20140206
  Receipt Date: 20140206
  Transmission Date: 20141002
  Serious: Yes (Other)
  Sender: FDA-Public Use
  Company Number: NL-TEVA-458798ISR

PATIENT
  Age: 43 Year
  Sex: Female
  Weight: 60 kg

DRUGS (7)
  1. TAMOXIFEN TABLET 20MG [Suspect]
     Indication: BREAST CANCER
     Dosage: 20 MILLIGRAM DAILY; ONCE DAILY ONE PIECE
     Route: 048
     Dates: start: 20140103, end: 20140114
  2. DEPAKINE CHRONO TABLET MGA 500MG [Concomitant]
     Dosage: 3 DD 1 : START DATE UNKNOWN
     Route: 048
  3. METFORMINE TABLET  500MG [Concomitant]
     Dosage: 2 DD 1 : START DATE UNKNOWN
     Route: 048
  4. NEXIUM TABLET MSR 40MG [Concomitant]
     Dosage: 1 DD 1: GASTRO-RESISTANT TABLET, START DATE UNKNOWN
     Route: 048
  5. VENTOLIN  100 AER CFKVR 100MCG/DO SPBS 200DO+INHAL [Concomitant]
     Dosage: IF NEEDED: INHALATION VAPOUR, START DATE UNKNOWN
     Route: 055
  6. NOVORAPID FLEXPEN INJVLST 100E/ML WWSP 3ML [Concomitant]
     Dosage: START DATE UNKNOWN
     Route: 058
  7. DOMPERIDON TABLET 10MG [Concomitant]
     Dosage: AS NEEDED, START DATE UNKNOWN
     Route: 048

REACTIONS (1)
  - Epilepsy [Recovered/Resolved]
